FAERS Safety Report 8053622-3 (Version None)
Quarter: 2012Q1

REPORT INFORMATION
  Report Type: 
  Country: None (occurrence: None)
  Receive Date: 20120118
  Receipt Date: 20120109
  Transmission Date: 20120608
  Serious: Yes (Hospitalization)
  Sender: FDA-Public Use
  Company Number: US-BAYER-2010-003049

PATIENT
  Sex: Female
  Weight: 58.957 kg

DRUGS (5)
  1. YASMIN [Suspect]
     Dosage: UNK
     Dates: start: 20040101, end: 20080101
  2. METFORMIN HCL [Concomitant]
     Indication: POLYCYSTIC OVARIES
     Dosage: 850 MG, BID
     Route: 048
     Dates: start: 20050101, end: 20070601
  3. LEVOTHYROXINE SODIUM [Concomitant]
     Indication: THYROID DISORDER
     Dosage: 0.125 MG, QD
     Route: 048
     Dates: start: 20000101, end: 20100101
  4. YAZ [Suspect]
     Dosage: UNK
     Dates: start: 20040101, end: 20070101
  5. IBUPROFEN [Concomitant]
     Indication: PAIN
     Dosage: 600 MG, PRN

REACTIONS (1)
  - GALLBLADDER INJURY [None]
